FAERS Safety Report 6693193-7 (Version None)
Quarter: 2010Q2

REPORT INFORMATION
  Report Type: 
  Country: None (occurrence: None)
  Receive Date: 20100422
  Receipt Date: 20100419
  Transmission Date: 20101027
  Serious: Yes (Hospitalization)
  Sender: FDA-Public Use
  Company Number: US-ELI_LILLY_AND_COMPANY-US201004002860

PATIENT
  Sex: Female

DRUGS (3)
  1. HUMALOG MIX 50/50 [Suspect]
     Indication: DIABETES MELLITUS
     Dosage: 43 U, 3/D
     Dates: start: 20080101
  2. HUMALOG MIX 50/50 [Suspect]
     Dosage: 20 U, EACH EVENING
     Dates: start: 20080101
  3. NOVOLOG [Concomitant]
     Dosage: UNK, EVERY 6 HRS

REACTIONS (1)
  - BLOOD GLUCOSE INCREASED [None]
